FAERS Safety Report 20606929 (Version 1)
Quarter: 2022Q1

REPORT INFORMATION
  Report Type: Report from Study
  Country: US (occurrence: US)
  Receive Date: 20220317
  Receipt Date: 20220317
  Transmission Date: 20220423
  Serious: Yes (Other)
  Sender: FDA-Public Use
  Company Number: US-HORIZON THERAPEUTICS-HZN-2021-004737

PATIENT

DRUGS (17)
  1. TEPEZZA [Suspect]
     Active Substance: TEPROTUMUMAB-TRBW
     Indication: Endocrine ophthalmopathy
     Dosage: 17.6 ML = 840 MG
     Route: 042
     Dates: start: 20210626
  2. TEPEZZA [Suspect]
     Active Substance: TEPROTUMUMAB-TRBW
     Dosage: 20 MG/KG (2ND INFUSION)
     Route: 042
     Dates: start: 20210717
  3. TEPEZZA [Suspect]
     Active Substance: TEPROTUMUMAB-TRBW
     Dosage: 7TH INFUSION
     Route: 042
     Dates: start: 20211129
  4. TEPEZZA [Suspect]
     Active Substance: TEPROTUMUMAB-TRBW
     Dosage: EIGHTH INFUSION
     Route: 042
     Dates: start: 202112
  5. DRAMAMINE [Concomitant]
     Active Substance: DIMENHYDRINATE
     Indication: Product used for unknown indication
     Dosage: 50 MG
     Route: 065
  6. IBUPROFEN [Concomitant]
     Active Substance: IBUPROFEN
     Indication: Product used for unknown indication
     Dosage: 200 MG
     Route: 065
  7. VITAMIN C [Concomitant]
     Active Substance: ASCORBIC ACID
     Indication: Product used for unknown indication
     Dosage: 1000 MG
     Route: 065
  8. SAXENDA [Concomitant]
     Active Substance: LIRAGLUTIDE
     Indication: Product used for unknown indication
     Dosage: 3 MG/0.5ML PEN INJCTR
     Route: 065
  9. SPIRONOLACTONE [Concomitant]
     Active Substance: SPIRONOLACTONE
     Indication: Product used for unknown indication
     Dosage: 100 MG
     Route: 065
  10. STERILE WATER [Concomitant]
     Active Substance: WATER
     Indication: Product used for unknown indication
     Route: 065
  11. SODIUM CHLORIDE [Concomitant]
     Active Substance: SODIUM CHLORIDE
     Indication: Product used for unknown indication
     Route: 065
  12. SODIUM CHLORIDE [Concomitant]
     Active Substance: SODIUM CHLORIDE
     Indication: Product used for unknown indication
     Dosage: 0.9 %
     Route: 065
  13. FISH OIL [Concomitant]
     Active Substance: FISH OIL
     Indication: Product used for unknown indication
     Dosage: UNK
     Route: 065
  14. VITAMIN D2 [Concomitant]
     Active Substance: ERGOCALCIFEROL
     Indication: Product used for unknown indication
     Dosage: 1250 MCG CAPSULE
     Route: 065
  15. XIIDRA [Concomitant]
     Active Substance: LIFITEGRAST
     Indication: Product used for unknown indication
     Dosage: 5%  DROPPERETTE
     Route: 065
  16. LEVOTHYROXINE [Concomitant]
     Active Substance: LEVOTHYROXINE
     Indication: Product used for unknown indication
     Dosage: 150 MCG
     Route: 065
  17. DEXTROSE\ELECTROLYTES NOS [Concomitant]
     Active Substance: DEXTROSE\ELECTROLYTES NOS

REACTIONS (12)
  - Anaphylactic reaction [Recovering/Resolving]
  - Deafness [Unknown]
  - Somnolence [Recovering/Resolving]
  - Euphoric mood [Recovering/Resolving]
  - Ocular discomfort [Recovering/Resolving]
  - Injection site pain [Recovering/Resolving]
  - Feeling abnormal [Unknown]
  - Dehydration [Unknown]
  - Fatigue [Unknown]
  - Hypoacusis [Unknown]
  - Alopecia [Unknown]
  - Muscle spasms [Unknown]

NARRATIVE: CASE EVENT DATE: 20210718
